FAERS Safety Report 8959976 (Version 2)
Quarter: 2014Q1

REPORT INFORMATION
  Report Type: Report from Study
  Country: CA (occurrence: CA)
  Receive Date: 20121212
  Receipt Date: 20140303
  Transmission Date: 20141002
  Serious: Yes (Other)
  Sender: FDA-Public Use
  Company Number: CA-JNJFOC-20121201560

PATIENT
  Sex: Female
  Weight: 72 kg

DRUGS (22)
  1. REMICADE [Suspect]
     Indication: CROHN^S DISEASE
     Route: 042
     Dates: start: 2007
  2. ATORVASTATIN [Concomitant]
     Route: 065
     Dates: start: 20111214
  3. ATORVASTATIN [Concomitant]
     Route: 065
     Dates: start: 20100708
  4. NOVO-HYDRAZIDE [Concomitant]
     Route: 065
     Dates: start: 20090814
  5. HYDROCHLOROTHIAZIDE [Concomitant]
     Route: 065
     Dates: start: 20110302
  6. HYDROCHLOROTHIAZIDE [Concomitant]
     Route: 065
     Dates: start: 20111113
  7. HYDROCHLOROTHIAZIDE [Concomitant]
     Route: 065
     Dates: start: 20110708
  8. QUETIAPINE [Concomitant]
     Route: 065
     Dates: start: 20101006
  9. QUETIAPINE [Concomitant]
     Route: 065
     Dates: start: 20100706
  10. CYMBALTA [Concomitant]
     Route: 065
  11. CITALOPRAM [Concomitant]
     Route: 065
     Dates: start: 20101006
  12. RAN-PANTOPRAZOLE [Concomitant]
     Route: 065
     Dates: start: 20101216
  13. RAN-PANTOPRAZOLE [Concomitant]
     Route: 065
     Dates: start: 20111122
  14. VITAMIN B 12 [Concomitant]
     Dosage: 1000 MCG/ML
     Route: 065
     Dates: start: 20111012
  15. LORAZEPAM [Concomitant]
     Route: 065
  16. ADVAIR [Concomitant]
     Dosage: 25/250 MICROGRAM (MCG)
     Route: 065
     Dates: start: 20111203
  17. ALENDRONATE [Concomitant]
     Route: 065
     Dates: start: 20111214
  18. VENLAFAXINE XR [Concomitant]
     Route: 065
  19. HYDERM CREAM [Concomitant]
     Route: 065
     Dates: start: 20100103
  20. BECLOMETHASONE DIPROPIONATE [Concomitant]
     Route: 065
     Dates: start: 20110808
  21. GABAPENTIN [Concomitant]
     Indication: BACK PAIN
     Route: 065
     Dates: start: 201211, end: 201311
  22. ALEVE [Concomitant]
     Indication: BACK PAIN
     Route: 065
     Dates: start: 201401

REACTIONS (2)
  - Nerve injury [Not Recovered/Not Resolved]
  - Gait disturbance [Unknown]
